FAERS Safety Report 16850015 (Version 2)
Quarter: 2019Q4

REPORT INFORMATION
  Report Type: Spontaneous
  Country: SI (occurrence: SI)
  Receive Date: 20190925
  Receipt Date: 20191115
  Transmission Date: 20200122
  Serious: Yes (Life-Threatening, Hospitalization, Other)
  Sender: FDA-Public Use
  Company Number: SI-B.I. PHARMACEUTICALS,INC./RIDGEFIELD-2019-BI-103627

PATIENT
  Age: 76 Year
  Sex: Female

DRUGS (9)
  1. CORDARONE [Concomitant]
     Active Substance: AMIODARONE HYDROCHLORIDE
     Route: 065
  2. PRAVASTATIN. [Concomitant]
     Active Substance: PRAVASTATIN
     Indication: PRODUCT USED FOR UNKNOWN INDICATION
     Route: 065
     Dates: start: 20190711
  3. PRADAXA [Suspect]
     Active Substance: DABIGATRAN ETEXILATE MESYLATE
     Indication: ACUTE MYOCARDIAL INFARCTION
     Route: 065
     Dates: start: 20190711
  4. ASPIRIN [ACETYLSALICYLIC ACID] [Concomitant]
     Active Substance: ASPIRIN
     Indication: PRODUCT USED FOR UNKNOWN INDICATION
     Route: 065
     Dates: start: 20190711
  5. PLAVIX [Concomitant]
     Active Substance: CLOPIDOGREL BISULFATE
     Indication: PRODUCT USED FOR UNKNOWN INDICATION
     Route: 065
     Dates: start: 20190711
  6. LECALPIN [Concomitant]
     Indication: PRODUCT USED FOR UNKNOWN INDICATION
     Route: 065
     Dates: start: 20190711
  7. CORDARONE [Concomitant]
     Active Substance: AMIODARONE HYDROCHLORIDE
     Indication: PRODUCT USED FOR UNKNOWN INDICATION
     Dosage: FOR THREE WEEKS, THEN 200 MG
     Route: 065
     Dates: start: 20190711
  8. ACIPAN [Concomitant]
     Active Substance: PANTOPRAZOLE SODIUM
     Indication: PRODUCT USED FOR UNKNOWN INDICATION
     Route: 065
     Dates: start: 20190711
  9. CONCOR [Concomitant]
     Active Substance: BISOPROLOL FUMARATE
     Indication: PRODUCT USED FOR UNKNOWN INDICATION
     Route: 065
     Dates: start: 20190711

REACTIONS (10)
  - Respiratory failure [Unknown]
  - Endocarditis [Unknown]
  - Intracranial aneurysm [Unknown]
  - Hemiparesis [Unknown]
  - Intracranial haematoma [Recovering/Resolving]
  - Pyrexia [Unknown]
  - Renal failure [Unknown]
  - Aphasia [Unknown]
  - Septic shock [Unknown]
  - Haematoma [Unknown]

NARRATIVE: CASE EVENT DATE: 20190715
